FAERS Safety Report 18041664 (Version 4)
Quarter: 2020Q3

REPORT INFORMATION
  Report Type: Report from Study
  Country: BR (occurrence: BR)
  Receive Date: 20200720
  Receipt Date: 20200828
  Transmission Date: 20201103
  Serious: Yes (Other)
  Sender: FDA-Public Use
  Company Number: BR-AMGEN-BRACT2020116773

PATIENT
  Age: 29 Year
  Sex: Female

DRUGS (1)
  1. PASURTA [Suspect]
     Active Substance: ERENUMAB
     Indication: MIGRAINE
     Dosage: UNK
     Route: 065
     Dates: start: 20200705

REACTIONS (12)
  - Drug ineffective [Unknown]
  - Fat tissue increased [Unknown]
  - Speech disorder [Unknown]
  - Headache [Not Recovered/Not Resolved]
  - Incorrect dose administered [Unknown]
  - Muscle strain [Unknown]
  - Choking [Not Recovered/Not Resolved]
  - Migraine [Unknown]
  - Paralysis [Unknown]
  - Eye movement disorder [Not Recovered/Not Resolved]
  - Flushing [Unknown]
  - Dyspnoea [Not Recovered/Not Resolved]

NARRATIVE: CASE EVENT DATE: 20200710
